FAERS Safety Report 6456571-7 (Version None)
Quarter: 2009Q4

REPORT INFORMATION
  Report Type: 
  Country: None (occurrence: None)
  Receive Date: 20091120
  Receipt Date: 20091109
  Transmission Date: 20100525
  Serious: Yes (Hospitalization)
  Sender: FDA-Public Use
  Company Number: 2009S1008422

PATIENT
  Sex: Male

DRUGS (1)
  1. PHOSPHOSODA FLAVOR NOT SPECIFIED [Suspect]
     Indication: COLONOSCOPY
     Dosage: 90 ML;TOTAL;PO
     Route: 048
     Dates: start: 20060108, end: 20060108

REACTIONS (4)
  - DIARRHOEA [None]
  - DIZZINESS [None]
  - RENAL FAILURE [None]
  - RENAL TRANSPLANT [None]
